FAERS Safety Report 4656451-3 (Version None)
Quarter: 2005Q2

REPORT INFORMATION
  Report Type: 
  Country: None (occurrence: None)
  Receive Date: 20050504
  Receipt Date: 20050421
  Transmission Date: 20051028
  Serious: No
  Sender: FDA-Public Use
  Company Number: 2005AP02517

PATIENT
  Age: 4 Year
  Sex: Male

DRUGS (6)
  1. EMLA [Suspect]
     Indication: PREMEDICATION
     Dates: start: 20050208
  2. INFANRIX [Suspect]
     Indication: IMMUNISATION
     Dates: start: 20050208
  3. INFANRIX [Suspect]
     Indication: PROPHYLAXIS
     Dates: start: 20050208
  4. PRIORIX VACCINE [Suspect]
     Indication: IMMUNISATION
     Dates: start: 20050208
  5. PRIORIX VACCINE [Suspect]
     Indication: PROPHYLAXIS
     Dates: start: 20050208
  6. TWINRIX [Concomitant]

REACTIONS (4)
  - FEELING HOT [None]
  - INFLAMMATION [None]
  - OEDEMA PERIPHERAL [None]
  - PRURITUS [None]
